FAERS Safety Report 6143875-0 (Version None)
Quarter: 2009Q2

REPORT INFORMATION
  Report Type: 
  Country: None (occurrence: None)
  Receive Date: 20090405
  Receipt Date: 20090403
  Transmission Date: 20091009
  Serious: Yes (Other)
  Sender: FDA-Public Use
  Company Number: US-PFIZER INC-2009171326

PATIENT
  Sex: Female
  Weight: 63.502 kg

DRUGS (5)
  1. LYRICA [Suspect]
     Indication: FIBROMYALGIA
     Dosage: 75 MG, UNK
  2. ALL OTHER THERAPEUTIC PRODUCTS [Concomitant]
  3. CORTISONE ACETATE [Concomitant]
  4. PREMARIN [Concomitant]
  5. SYNTHROID [Concomitant]

REACTIONS (1)
  - EYE SWELLING [None]
